FAERS Safety Report 12723595 (Version 1)
Quarter: 2016Q3

REPORT INFORMATION
  Report Type: Spontaneous
  Country: NO (occurrence: NO)
  Receive Date: 20160908
  Receipt Date: 20160908
  Transmission Date: 20161109
  Serious: Yes (Other)
  Sender: FDA-Public Use
  Company Number: NO-SUN PHARMACEUTICAL INDUSTRIES LTD-2016R1-123563

PATIENT
  Age: 63 Year
  Sex: Male

DRUGS (3)
  1. WARFARIN [Interacting]
     Active Substance: WARFARIN
     Indication: PRODUCT USED FOR UNKNOWN INDICATION
     Dosage: UNK
     Route: 065
  2. BLINDED SILDENAFIL CITRATE [Interacting]
     Active Substance: SILDENAFIL CITRATE
     Indication: PRODUCT USED FOR UNKNOWN INDICATION
     Dosage: UNK
     Route: 065
  3. ASPIRIN. [Suspect]
     Active Substance: ASPIRIN
     Indication: PRODUCT USED FOR UNKNOWN INDICATION
     Dosage: UNK
     Route: 065

REACTIONS (8)
  - Drug administration error [Recovered/Resolved]
  - Duodenal ulcer haemorrhage [Recovered/Resolved]
  - Labelled drug-drug interaction medication error [Recovered/Resolved]
  - Renal failure [Recovered/Resolved]
  - Epistaxis [Recovered/Resolved]
  - Melaena [Recovered/Resolved]
  - Ventricular tachycardia [Recovered/Resolved]
  - Small intestinal haemorrhage [Recovered/Resolved]
